FAERS Safety Report 24430593 (Version 3)
Quarter: 2025Q1

REPORT INFORMATION
  Report Type: Spontaneous
  Country: CA (occurrence: CA)
  Receive Date: 20241013
  Receipt Date: 20250227
  Transmission Date: 20250409
  Serious: Yes (Death, Other)
  Sender: BRISTOL-MYERS SQUIBB COMPANY
  Company Number: CA-BRISTOL-MYERS SQUIBB COMPANY-2024-161230

PATIENT
  Age: 44 Year
  Sex: Female
  Weight: 78 kg

DRUGS (431)
  1. ORENCIA [Suspect]
     Active Substance: ABATACEPT
     Indication: Rheumatoid arthritis
     Route: 058
  2. ORENCIA [Suspect]
     Active Substance: ABATACEPT
     Route: 058
  3. ORENCIA [Suspect]
     Active Substance: ABATACEPT
     Route: 058
  4. ORENCIA [Suspect]
     Active Substance: ABATACEPT
     Route: 058
  5. ORENCIA [Suspect]
     Active Substance: ABATACEPT
     Route: 058
  6. ORENCIA [Suspect]
     Active Substance: ABATACEPT
     Route: 058
  7. ORENCIA [Suspect]
     Active Substance: ABATACEPT
     Indication: Rheumatoid arthritis
     Route: 042
  8. ORENCIA [Suspect]
     Active Substance: ABATACEPT
     Route: 042
  9. TRIAMCINOLONE ACETONIDE [Suspect]
     Active Substance: TRIAMCINOLONE ACETONIDE
     Indication: Rheumatoid arthritis
     Route: 014
  10. ORENCIA [Suspect]
     Active Substance: ABATACEPT
     Indication: Rheumatoid arthritis
  11. ORENCIA [Suspect]
     Active Substance: ABATACEPT
  12. ORENCIA [Suspect]
     Active Substance: ABATACEPT
     Route: 048
  13. ORENCIA [Suspect]
     Active Substance: ABATACEPT
     Route: 048
  14. ORENCIA [Suspect]
     Active Substance: ABATACEPT
     Route: 048
  15. ORENCIA [Suspect]
     Active Substance: ABATACEPT
     Route: 017
  16. ORENCIA [Suspect]
     Active Substance: ABATACEPT
     Route: 041
  17. ORENCIA [Suspect]
     Active Substance: ABATACEPT
  18. ACETAMINOPHEN [Concomitant]
     Active Substance: ACETAMINOPHEN
     Indication: Rheumatoid arthritis
  19. ACETAMINOPHEN [Concomitant]
     Active Substance: ACETAMINOPHEN
     Indication: Pyrexia
  20. ACETAMINOPHEN [Concomitant]
     Active Substance: ACETAMINOPHEN
     Indication: Pain
  21. ACTEMRA [Concomitant]
     Active Substance: TOCILIZUMAB
     Indication: Rheumatoid arthritis
     Route: 048
  22. ACTEMRA [Concomitant]
     Active Substance: TOCILIZUMAB
     Route: 058
  23. ACTEMRA [Concomitant]
     Active Substance: TOCILIZUMAB
     Route: 058
  24. ACTEMRA [Concomitant]
     Active Substance: TOCILIZUMAB
     Route: 042
  25. ACTEMRA [Concomitant]
     Active Substance: TOCILIZUMAB
     Route: 042
  26. ACTEMRA [Concomitant]
     Active Substance: TOCILIZUMAB
  27. ACTEMRA [Concomitant]
     Active Substance: TOCILIZUMAB
     Route: 042
  28. ACTEMRA [Concomitant]
     Active Substance: TOCILIZUMAB
     Route: 058
  29. ACTEMRA [Concomitant]
     Active Substance: TOCILIZUMAB
     Route: 061
  30. ACTEMRA [Concomitant]
     Active Substance: TOCILIZUMAB
  31. ACTEMRA [Concomitant]
     Active Substance: TOCILIZUMAB
     Route: 016
  32. ACTEMRA [Concomitant]
     Active Substance: TOCILIZUMAB
  33. ACTEMRA [Concomitant]
     Active Substance: TOCILIZUMAB
     Route: 042
  34. ACTEMRA [Concomitant]
     Active Substance: TOCILIZUMAB
     Route: 016
  35. ACTEMRA [Concomitant]
     Active Substance: TOCILIZUMAB
     Route: 016
  36. ACTEMRA [Concomitant]
     Active Substance: TOCILIZUMAB
     Route: 048
  37. ACTEMRA [Concomitant]
     Active Substance: TOCILIZUMAB
     Route: 042
  38. ACTEMRA [Concomitant]
     Active Substance: TOCILIZUMAB
     Route: 042
  39. ACTEMRA [Concomitant]
     Active Substance: TOCILIZUMAB
     Route: 042
  40. ACTEMRA [Concomitant]
     Active Substance: TOCILIZUMAB
     Route: 042
  41. ACTEMRA [Concomitant]
     Active Substance: TOCILIZUMAB
     Route: 042
  42. ACTEMRA [Concomitant]
     Active Substance: TOCILIZUMAB
  43. ACTEMRA [Concomitant]
     Active Substance: TOCILIZUMAB
     Route: 058
  44. ACTEMRA [Concomitant]
     Active Substance: TOCILIZUMAB
     Route: 042
  45. ACTEMRA [Concomitant]
     Active Substance: TOCILIZUMAB
  46. ACTEMRA [Concomitant]
     Active Substance: TOCILIZUMAB
  47. ACTEMRA [Concomitant]
     Active Substance: TOCILIZUMAB
     Route: 042
  48. ACTEMRA [Concomitant]
     Active Substance: TOCILIZUMAB
     Route: 042
  49. ACTEMRA [Concomitant]
     Active Substance: TOCILIZUMAB
     Route: 042
  50. ACTEMRA [Concomitant]
     Active Substance: TOCILIZUMAB
     Route: 042
  51. ACTEMRA [Concomitant]
     Active Substance: TOCILIZUMAB
     Route: 058
  52. ACTEMRA [Concomitant]
     Active Substance: TOCILIZUMAB
  53. ADALIMUMAB [Concomitant]
     Active Substance: ADALIMUMAB
     Indication: Rheumatoid arthritis
     Route: 058
  54. ADALIMUMAB [Concomitant]
     Active Substance: ADALIMUMAB
     Indication: Psoriatic arthropathy
     Route: 058
  55. ADALIMUMAB [Concomitant]
     Active Substance: ADALIMUMAB
     Route: 048
  56. ADALIMUMAB [Concomitant]
     Active Substance: ADALIMUMAB
  57. ADALIMUMAB [Concomitant]
     Active Substance: ADALIMUMAB
     Route: 042
  58. ALENDRONIC ACID [Concomitant]
     Active Substance: ALENDRONIC ACID
     Indication: Rheumatoid arthritis
  59. ALENDRONIC ACID [Concomitant]
     Active Substance: ALENDRONIC ACID
     Route: 016
  60. ALENDRONIC ACID [Concomitant]
     Active Substance: ALENDRONIC ACID
  61. ALENDRONIC ACID [Concomitant]
     Active Substance: ALENDRONIC ACID
     Route: 048
  62. ALENDRONIC ACID [Concomitant]
     Active Substance: ALENDRONIC ACID
  63. ALENDRONIC ACID [Concomitant]
     Active Substance: ALENDRONIC ACID
     Route: 048
  64. ALENDRONIC ACID [Concomitant]
     Active Substance: ALENDRONIC ACID
  65. ALENDRONIC ACID [Concomitant]
     Active Substance: ALENDRONIC ACID
     Route: 048
  66. PREDNISONE [Concomitant]
     Active Substance: PREDNISONE
     Indication: Systemic lupus erythematosus
  67. PREDNISONE [Concomitant]
     Active Substance: PREDNISONE
     Indication: Synovitis
  68. PREDNISONE [Concomitant]
     Active Substance: PREDNISONE
     Indication: Rheumatoid arthritis
     Route: 048
  69. PREDNISONE [Concomitant]
     Active Substance: PREDNISONE
     Indication: Psoriatic arthropathy
  70. PREDNISONE [Concomitant]
     Active Substance: PREDNISONE
     Indication: Pemphigus
  71. PREDNISONE [Concomitant]
     Active Substance: PREDNISONE
     Indication: Inflammation
  72. PREDNISONE [Concomitant]
     Active Substance: PREDNISONE
     Indication: Bursitis
     Route: 048
  73. PREDNISONE [Concomitant]
     Active Substance: PREDNISONE
     Route: 048
  74. PREDNISONE [Concomitant]
     Active Substance: PREDNISONE
     Route: 048
  75. APREMILAST [Concomitant]
     Active Substance: APREMILAST
     Indication: Product used for unknown indication
     Route: 048
  76. APREMILAST [Concomitant]
     Active Substance: APREMILAST
  77. APREPITANT [Concomitant]
     Active Substance: APREPITANT
     Indication: Product used for unknown indication
     Route: 042
  78. APREPITANT [Concomitant]
     Active Substance: APREPITANT
     Route: 048
  79. APREPITANT [Concomitant]
     Active Substance: APREPITANT
     Route: 042
  80. APREPITANT [Concomitant]
     Active Substance: APREPITANT
  81. ASACOL [Concomitant]
     Active Substance: MESALAMINE
     Indication: Product used for unknown indication
  82. CALCIUM [Concomitant]
     Active Substance: CALCIUM
     Indication: Product used for unknown indication
  83. CALCIUM CARBONATE [Concomitant]
     Active Substance: CALCIUM CARBONATE
     Indication: Product used for unknown indication
  84. CALCIUM GLUBIONATE [Concomitant]
     Active Substance: CALCIUM GLUBIONATE
     Indication: Product used for unknown indication
  85. CALCIUM GLUBIONATE [Concomitant]
     Active Substance: CALCIUM GLUBIONATE
  86. CALCIUM GLUBIONATE [Concomitant]
     Active Substance: CALCIUM GLUBIONATE
     Route: 016
  87. CELEBREX [Concomitant]
     Active Substance: CELECOXIB
     Indication: Rheumatoid arthritis
     Route: 048
  88. CELEBREX [Concomitant]
     Active Substance: CELECOXIB
     Indication: Arthritis
     Route: 048
  89. CELEBREX [Concomitant]
     Active Substance: CELECOXIB
  90. CELECOXIB [Concomitant]
     Active Substance: CELECOXIB
     Indication: Rheumatoid arthritis
  91. CELECOXIB [Concomitant]
     Active Substance: CELECOXIB
  92. CERTOLIZUMAB PEGOL [Concomitant]
     Active Substance: CERTOLIZUMAB PEGOL
     Indication: Product used for unknown indication
  93. CHLORAPREP [Concomitant]
     Active Substance: CHLORHEXIDINE GLUCONATE\ISOPROPYL ALCOHOL
     Indication: Product used for unknown indication
  94. CHLORAPREP [Concomitant]
     Active Substance: CHLORHEXIDINE GLUCONATE\ISOPROPYL ALCOHOL
     Route: 048
  95. CHLORAPREP [Concomitant]
     Active Substance: CHLORHEXIDINE GLUCONATE\ISOPROPYL ALCOHOL
     Route: 061
  96. CHLORAPREP [Concomitant]
     Active Substance: CHLORHEXIDINE GLUCONATE\ISOPROPYL ALCOHOL
     Route: 061
  97. CHLORHEXIDINE GLUCONATE [Concomitant]
     Active Substance: CHLORHEXIDINE GLUCONATE
     Indication: Product used for unknown indication
  98. CHLORHEXIDINE GLUCONATE [Concomitant]
     Active Substance: CHLORHEXIDINE GLUCONATE
     Route: 002
  99. CHLORHEXIDINE GLUCONATE [Concomitant]
     Active Substance: CHLORHEXIDINE GLUCONATE
     Route: 048
  100. CHLORHEXIDINE GLUCONATE [Concomitant]
     Active Substance: CHLORHEXIDINE GLUCONATE
     Route: 002
  101. CHLORHEXIDINE GLUCONATE [Concomitant]
     Active Substance: CHLORHEXIDINE GLUCONATE
  102. CHLORHEXIDINE GLUCONATE [Concomitant]
     Active Substance: CHLORHEXIDINE GLUCONATE
     Route: 061
  103. CHLORHEXIDINE GLUCONATE [Concomitant]
     Active Substance: CHLORHEXIDINE GLUCONATE
  104. CHLORHEXIDINE GLUCONATE [Concomitant]
     Active Substance: CHLORHEXIDINE GLUCONATE
  105. CHLORHEXIDINE GLUCONATE [Concomitant]
     Active Substance: CHLORHEXIDINE GLUCONATE
     Route: 061
  106. CIMZIA [Concomitant]
     Active Substance: CERTOLIZUMAB PEGOL
     Indication: Rheumatoid arthritis
  107. CIMZIA [Concomitant]
     Active Substance: CERTOLIZUMAB PEGOL
     Indication: Psoriatic arthropathy
  108. CIMZIA [Concomitant]
     Active Substance: CERTOLIZUMAB PEGOL
     Indication: Psoriasis
  109. CIMZIA [Concomitant]
     Active Substance: CERTOLIZUMAB PEGOL
  110. CIMZIA [Concomitant]
     Active Substance: CERTOLIZUMAB PEGOL
     Route: 058
  111. CIMZIA [Concomitant]
     Active Substance: CERTOLIZUMAB PEGOL
     Route: 042
  112. CIMZIA [Concomitant]
     Active Substance: CERTOLIZUMAB PEGOL
     Route: 058
  113. CIMZIA [Concomitant]
     Active Substance: CERTOLIZUMAB PEGOL
  114. CIMZIA [Concomitant]
     Active Substance: CERTOLIZUMAB PEGOL
     Route: 058
  115. CIMZIA [Concomitant]
     Active Substance: CERTOLIZUMAB PEGOL
  116. CIMZIA [Concomitant]
     Active Substance: CERTOLIZUMAB PEGOL
     Route: 058
  117. CIMZIA [Concomitant]
     Active Substance: CERTOLIZUMAB PEGOL
     Route: 058
  118. CIMZIA [Concomitant]
     Active Substance: CERTOLIZUMAB PEGOL
     Route: 005
  119. CIMZIA [Concomitant]
     Active Substance: CERTOLIZUMAB PEGOL
     Route: 058
  120. CORTISONE ACETATE [Concomitant]
     Active Substance: CORTISONE ACETATE
     Indication: Rheumatoid arthritis
  121. CORTISONE ACETATE [Concomitant]
     Active Substance: CORTISONE ACETATE
     Route: 061
  122. CORTISONE ACETATE [Concomitant]
     Active Substance: CORTISONE ACETATE
     Route: 061
  123. CORTISONE ACETATE [Concomitant]
     Active Substance: CORTISONE ACETATE
     Route: 050
  124. CORTISONE ACETATE [Concomitant]
     Active Substance: CORTISONE ACETATE
     Route: 048
  125. CORTISONE ACETATE [Concomitant]
     Active Substance: CORTISONE ACETATE
     Route: 048
  126. COSENTYX [Concomitant]
     Active Substance: SECUKINUMAB
     Indication: Rheumatoid arthritis
     Route: 042
  127. COSENTYX [Concomitant]
     Active Substance: SECUKINUMAB
     Route: 005
  128. COSENTYX [Concomitant]
     Active Substance: SECUKINUMAB
     Route: 005
  129. COSENTYX [Concomitant]
     Active Substance: SECUKINUMAB
     Route: 042
  130. COSENTYX [Concomitant]
     Active Substance: SECUKINUMAB
  131. DESOXIMETASONE [Concomitant]
     Active Substance: DESOXIMETASONE
     Indication: Rheumatoid arthritis
     Route: 003
  132. DESOXIMETASONE [Concomitant]
     Active Substance: DESOXIMETASONE
     Route: 048
  133. DESOXIMETASONE [Concomitant]
     Active Substance: DESOXIMETASONE
  134. DESOXIMETASONE [Concomitant]
     Active Substance: DESOXIMETASONE
     Route: 048
  135. DESOXIMETASONE [Concomitant]
     Active Substance: DESOXIMETASONE
     Route: 048
  136. DESOXIMETASONE [Concomitant]
     Active Substance: DESOXIMETASONE
     Route: 003
  137. DESOXIMETASONE [Concomitant]
     Active Substance: DESOXIMETASONE
     Route: 003
  138. DESOXIMETASONE [Concomitant]
     Active Substance: DESOXIMETASONE
     Route: 058
  139. DESOXIMETASONE [Concomitant]
     Active Substance: DESOXIMETASONE
     Route: 058
  140. DESOXIMETASONE [Concomitant]
     Active Substance: DESOXIMETASONE
     Route: 048
  141. DESOXIMETASONE [Concomitant]
     Active Substance: DESOXIMETASONE
  142. DESOXIMETASONE [Concomitant]
     Active Substance: DESOXIMETASONE
     Route: 061
  143. DESOXIMETASONE [Concomitant]
     Active Substance: DESOXIMETASONE
     Route: 058
  144. DESOXIMETASONE [Concomitant]
     Active Substance: DESOXIMETASONE
     Route: 061
  145. DESOXIMETASONE [Concomitant]
     Active Substance: DESOXIMETASONE
     Route: 058
  146. DESOXIMETASONE [Concomitant]
     Active Substance: DESOXIMETASONE
     Route: 003
  147. DESOXIMETASONE [Concomitant]
     Active Substance: DESOXIMETASONE
     Route: 058
  148. DESOXIMETASONE [Concomitant]
     Active Substance: DESOXIMETASONE
     Route: 048
  149. DESOXIMETASONE [Concomitant]
     Active Substance: DESOXIMETASONE
     Route: 042
  150. DESOXIMETASONE [Concomitant]
     Active Substance: DESOXIMETASONE
     Route: 003
  151. DESOXIMETASONE [Concomitant]
     Active Substance: DESOXIMETASONE
     Route: 048
  152. DESOXIMETASONE [Concomitant]
     Active Substance: DESOXIMETASONE
     Route: 061
  153. DICLOFENAC [Concomitant]
     Active Substance: DICLOFENAC
     Indication: Product used for unknown indication
  154. DICLOFENAC [Concomitant]
     Active Substance: DICLOFENAC
  155. DICLOFENAC DIETHYLAMINE [Concomitant]
     Active Substance: DICLOFENAC DIETHYLAMINE
     Indication: Product used for unknown indication
  156. DICLOFENAC POTASSIUM [Concomitant]
     Active Substance: DICLOFENAC POTASSIUM
     Indication: Product used for unknown indication
     Route: 058
  157. DICLOFENAC POTASSIUM [Concomitant]
     Active Substance: DICLOFENAC POTASSIUM
     Route: 048
  158. DICLOFENAC SODIUM [Concomitant]
     Active Substance: DICLOFENAC SODIUM
     Indication: Product used for unknown indication
  159. DICLOFENAC SODIUM [Concomitant]
     Active Substance: DICLOFENAC SODIUM
     Route: 058
  160. DICLOFENAC SODIUM [Concomitant]
     Active Substance: DICLOFENAC SODIUM
  161. DICLOFENAC SODIUM [Concomitant]
     Active Substance: DICLOFENAC SODIUM
  162. DICLOFENAC SODIUM [Concomitant]
     Active Substance: DICLOFENAC SODIUM
  163. DICLOFENAC SODIUM [Concomitant]
     Active Substance: DICLOFENAC SODIUM
     Route: 048
  164. DICLOFENAC SODIUM [Concomitant]
     Active Substance: DICLOFENAC SODIUM
  165. DILTIAZEM [Concomitant]
     Active Substance: DILTIAZEM
     Indication: Product used for unknown indication
  166. DILTIAZEM HYDROCHLORIDE [Concomitant]
     Active Substance: DILTIAZEM HYDROCHLORIDE
     Indication: Product used for unknown indication
  167. DILTIAZEM HYDROCHLORIDE [Concomitant]
     Active Substance: DILTIAZEM HYDROCHLORIDE
     Route: 042
  168. DOXYCYCLINE HYCLATE [Concomitant]
     Active Substance: DOXYCYCLINE HYCLATE
     Indication: Product used for unknown indication
  169. ENBREL [Concomitant]
     Active Substance: ETANERCEPT
     Indication: Rheumatoid arthritis
  170. ENBREL [Concomitant]
     Active Substance: ETANERCEPT
     Indication: Psoriatic arthropathy
  171. ENBREL [Concomitant]
     Active Substance: ETANERCEPT
     Route: 058
  172. ENBREL [Concomitant]
     Active Substance: ETANERCEPT
     Route: 058
  173. ENBREL [Concomitant]
     Active Substance: ETANERCEPT
     Route: 058
  174. ENBREL [Concomitant]
     Active Substance: ETANERCEPT
  175. ENBREL [Concomitant]
     Active Substance: ETANERCEPT
     Route: 058
  176. ENBREL [Concomitant]
     Active Substance: ETANERCEPT
     Route: 058
  177. ENBREL [Concomitant]
     Active Substance: ETANERCEPT
     Route: 058
  178. ENTYVIO [Concomitant]
     Active Substance: VEDOLIZUMAB
     Indication: Product used for unknown indication
  179. ERELZI [Concomitant]
     Active Substance: ETANERCEPT-SZZS
     Indication: Rheumatoid arthritis
  180. ERELZI [Concomitant]
     Active Substance: ETANERCEPT-SZZS
  181. ERELZI [Concomitant]
     Active Substance: ETANERCEPT-SZZS
     Route: 058
  182. ERELZI [Concomitant]
     Active Substance: ETANERCEPT-SZZS
     Route: 058
  183. ERELZI [Concomitant]
     Active Substance: ETANERCEPT-SZZS
  184. FLUMETHASONE PIVALATE [Concomitant]
     Active Substance: FLUMETHASONE PIVALATE
     Indication: Rheumatoid arthritis
     Route: 003
  185. FLUMETHASONE PIVALATE [Concomitant]
     Active Substance: FLUMETHASONE PIVALATE
  186. FLUMETHASONE PIVALATE [Concomitant]
     Active Substance: FLUMETHASONE PIVALATE
  187. FOLIC ACID [Concomitant]
     Active Substance: FOLIC ACID
     Indication: Rheumatoid arthritis
  188. FOLIC ACID [Concomitant]
     Active Substance: FOLIC ACID
  189. FOLIC ACID [Concomitant]
     Active Substance: FOLIC ACID
  190. FOLIC ACID [Concomitant]
     Active Substance: FOLIC ACID
  191. FOLIC ACID [Concomitant]
     Active Substance: FOLIC ACID
  192. FOLIC ACID [Concomitant]
     Active Substance: FOLIC ACID
  193. FOLIC ACID [Concomitant]
     Active Substance: FOLIC ACID
  194. FOLIC ACID [Concomitant]
     Active Substance: FOLIC ACID
  195. FOLIC ACID [Concomitant]
     Active Substance: FOLIC ACID
     Route: 048
  196. FOLIC ACID [Concomitant]
     Active Substance: FOLIC ACID
     Route: 048
  197. FOLIC ACID [Concomitant]
     Active Substance: FOLIC ACID
     Route: 048
  198. FOLIC ACID [Concomitant]
     Active Substance: FOLIC ACID
  199. FOLIC ACID [Concomitant]
     Active Substance: FOLIC ACID
  200. FOLIC ACID [Concomitant]
     Active Substance: FOLIC ACID
     Route: 048
  201. FOLIC ACID [Concomitant]
     Active Substance: FOLIC ACID
  202. FOLIC ACID [Concomitant]
     Active Substance: FOLIC ACID
  203. FOLIC ACID [Concomitant]
     Active Substance: FOLIC ACID
  204. FOLIC ACID [Concomitant]
     Active Substance: FOLIC ACID
  205. FOLIC ACID [Concomitant]
     Active Substance: FOLIC ACID
  206. FOLIC ACID [Concomitant]
     Active Substance: FOLIC ACID
  207. FOLIC ACID [Concomitant]
     Active Substance: FOLIC ACID
     Route: 048
  208. FOLIC ACID [Concomitant]
     Active Substance: FOLIC ACID
  209. FOLIC ACID [Concomitant]
     Active Substance: FOLIC ACID
     Route: 058
  210. FOSAMAX [Concomitant]
     Active Substance: ALENDRONATE SODIUM
     Indication: Rheumatoid arthritis
  211. FOSAMAX [Concomitant]
     Active Substance: ALENDRONATE SODIUM
     Route: 048
  212. FOSAMAX [Concomitant]
     Active Substance: ALENDRONATE SODIUM
     Route: 048
  213. FOSAMAX [Concomitant]
     Active Substance: ALENDRONATE SODIUM
  214. FOSAMAX [Concomitant]
     Active Substance: ALENDRONATE SODIUM
     Route: 048
  215. FOSAMAX [Concomitant]
     Active Substance: ALENDRONATE SODIUM
     Route: 005
  216. FOSAMAX [Concomitant]
     Active Substance: ALENDRONATE SODIUM
     Route: 005
  217. FOSAMAX [Concomitant]
     Active Substance: ALENDRONATE SODIUM
     Route: 048
  218. FOSAMAX [Concomitant]
     Active Substance: ALENDRONATE SODIUM
     Route: 048
  219. FOSAMAX [Concomitant]
     Active Substance: ALENDRONATE SODIUM
     Route: 058
  220. FOSAMAX [Concomitant]
     Active Substance: ALENDRONATE SODIUM
     Route: 016
  221. FOSAMAX [Concomitant]
     Active Substance: ALENDRONATE SODIUM
     Route: 048
  222. FOSAMAX [Concomitant]
     Active Substance: ALENDRONATE SODIUM
  223. GOLIMUMAB [Concomitant]
     Active Substance: GOLIMUMAB
     Indication: Rheumatoid arthritis
  224. GOLIMUMAB [Concomitant]
     Active Substance: GOLIMUMAB
     Route: 058
  225. HUMIRA [Concomitant]
     Active Substance: ADALIMUMAB
     Indication: Rheumatoid arthritis
     Route: 058
  226. HUMIRA [Concomitant]
     Active Substance: ADALIMUMAB
     Indication: Psoriatic arthropathy
     Route: 058
  227. HUMIRA [Concomitant]
     Active Substance: ADALIMUMAB
  228. HUMIRA [Concomitant]
     Active Substance: ADALIMUMAB
     Route: 058
  229. HUMIRA [Concomitant]
     Active Substance: ADALIMUMAB
     Route: 058
  230. HYDROCORTISONE SODIUM SUCCINATE [Concomitant]
     Active Substance: HYDROCORTISONE SODIUM SUCCINATE
     Indication: Rheumatoid arthritis
  231. HYDROCORTISONE SODIUM SUCCINATE [Concomitant]
     Active Substance: HYDROCORTISONE SODIUM SUCCINATE
     Route: 003
  232. HYDROCORTISONE SODIUM SUCCINATE [Concomitant]
     Active Substance: HYDROCORTISONE SODIUM SUCCINATE
     Route: 058
  233. HYDROCORTISONE SODIUM SUCCINATE [Concomitant]
     Active Substance: HYDROCORTISONE SODIUM SUCCINATE
  234. HYDROCORTISONE SODIUM SUCCINATE [Concomitant]
     Active Substance: HYDROCORTISONE SODIUM SUCCINATE
     Route: 058
  235. HYDROCORTISONE SODIUM SUCCINATE [Concomitant]
     Active Substance: HYDROCORTISONE SODIUM SUCCINATE
  236. HYDROCORTISONE SODIUM SUCCINATE [Concomitant]
     Active Substance: HYDROCORTISONE SODIUM SUCCINATE
     Route: 061
  237. HYDROCORTISONE SODIUM SUCCINATE [Concomitant]
     Active Substance: HYDROCORTISONE SODIUM SUCCINATE
     Route: 048
  238. HYDROCORTISONE SODIUM SUCCINATE [Concomitant]
     Active Substance: HYDROCORTISONE SODIUM SUCCINATE
  239. HYDROCORTISONE SODIUM SUCCINATE [Concomitant]
     Active Substance: HYDROCORTISONE SODIUM SUCCINATE
     Route: 061
  240. HYDROXYCHLOROQUINE [Concomitant]
     Active Substance: HYDROXYCHLOROQUINE
     Indication: Rheumatoid arthritis
  241. HYDROXYCHLOROQUINE [Concomitant]
     Active Substance: HYDROXYCHLOROQUINE
     Route: 048
  242. HYDROXYCHLOROQUINE [Concomitant]
     Active Substance: HYDROXYCHLOROQUINE
  243. HYDROXYCHLOROQUINE [Concomitant]
     Active Substance: HYDROXYCHLOROQUINE
     Route: 048
  244. HYDROXYCHLOROQUINE [Concomitant]
     Active Substance: HYDROXYCHLOROQUINE
  245. HYDROXYCHLOROQUINE [Concomitant]
     Active Substance: HYDROXYCHLOROQUINE
  246. HYDROXYCHLOROQUINE [Concomitant]
     Active Substance: HYDROXYCHLOROQUINE
  247. HYDROXYCHLOROQUINE [Concomitant]
     Active Substance: HYDROXYCHLOROQUINE
  248. HYDROXYCHLOROQUINE [Concomitant]
     Active Substance: HYDROXYCHLOROQUINE
  249. HYDROXYCHLOROQUINE [Concomitant]
     Active Substance: HYDROXYCHLOROQUINE
  250. HYDROXYCHLOROQUINE [Concomitant]
     Active Substance: HYDROXYCHLOROQUINE
     Route: 058
  251. HYDROXYCHLOROQUINE [Concomitant]
     Active Substance: HYDROXYCHLOROQUINE
     Route: 048
  252. HYDROXYCHLOROQUINE [Concomitant]
     Active Substance: HYDROXYCHLOROQUINE
  253. HYDROXYCHLOROQUINE [Concomitant]
     Active Substance: HYDROXYCHLOROQUINE
  254. HYDROXYCHLOROQUINE SULFATE [Concomitant]
     Active Substance: HYDROXYCHLOROQUINE SULFATE
     Indication: Rheumatoid arthritis
  255. HYDROXYCHLOROQUINE SULFATE [Concomitant]
     Active Substance: HYDROXYCHLOROQUINE SULFATE
     Route: 048
  256. HYDROXYCHLOROQUINE SULFATE [Concomitant]
     Active Substance: HYDROXYCHLOROQUINE SULFATE
  257. HYDROXYCHLOROQUINE SULFATE [Concomitant]
     Active Substance: HYDROXYCHLOROQUINE SULFATE
     Route: 048
  258. HYDROXYCHLOROQUINE SULFATE [Concomitant]
     Active Substance: HYDROXYCHLOROQUINE SULFATE
     Route: 048
  259. HYDROXYCHLOROQUINE SULFATE [Concomitant]
     Active Substance: HYDROXYCHLOROQUINE SULFATE
  260. HYDROXYCHLOROQUINE SULFATE [Concomitant]
     Active Substance: HYDROXYCHLOROQUINE SULFATE
     Route: 048
  261. HYDROXYCHLOROQUINE SULFATE [Concomitant]
     Active Substance: HYDROXYCHLOROQUINE SULFATE
  262. INFLIXIMAB [Concomitant]
     Active Substance: INFLIXIMAB
     Indication: Rheumatoid arthritis
     Route: 042
  263. INFLIXIMAB [Concomitant]
     Active Substance: INFLIXIMAB
  264. INFLIXIMAB [Concomitant]
     Active Substance: INFLIXIMAB
  265. INFLIXIMAB [Concomitant]
     Active Substance: INFLIXIMAB
     Route: 042
  266. INFLIXIMAB [Concomitant]
     Active Substance: INFLIXIMAB
     Route: 042
  267. ISOPROPYL ALCOHOL [Concomitant]
     Active Substance: ISOPROPYL ALCOHOL
     Indication: Product used for unknown indication
     Route: 061
  268. LEFLUNOMIDE [Concomitant]
     Active Substance: LEFLUNOMIDE
     Indication: Rheumatoid arthritis
     Route: 048
  269. LEFLUNOMIDE [Concomitant]
     Active Substance: LEFLUNOMIDE
     Route: 048
  270. LEFLUNOMIDE [Concomitant]
     Active Substance: LEFLUNOMIDE
     Route: 048
  271. LYRICA [Concomitant]
     Active Substance: PREGABALIN
     Indication: Product used for unknown indication
  272. METHOTREXATE [Concomitant]
     Active Substance: METHOTREXATE
     Indication: Rheumatoid arthritis
     Route: 058
  273. METHOTREXATE [Concomitant]
     Active Substance: METHOTREXATE
     Route: 013
  274. METHOTREXATE [Concomitant]
     Active Substance: METHOTREXATE
  275. METHOTREXATE [Concomitant]
     Active Substance: METHOTREXATE
     Route: 048
  276. METHOTREXATE [Concomitant]
     Active Substance: METHOTREXATE
     Route: 048
  277. METHOTREXATE [Concomitant]
     Active Substance: METHOTREXATE
     Route: 048
  278. METHOTREXATE [Concomitant]
     Active Substance: METHOTREXATE
     Route: 048
  279. METHOTREXATE [Concomitant]
     Active Substance: METHOTREXATE
     Route: 048
  280. METHOTREXATE [Concomitant]
     Active Substance: METHOTREXATE
     Route: 048
  281. METHOTREXATE [Concomitant]
     Active Substance: METHOTREXATE
     Route: 048
  282. METHOTREXATE [Concomitant]
     Active Substance: METHOTREXATE
     Route: 048
  283. METHOTREXATE [Concomitant]
     Active Substance: METHOTREXATE
     Route: 048
  284. METHOTREXATE [Concomitant]
     Active Substance: METHOTREXATE
     Route: 048
  285. METHOTREXATE [Concomitant]
     Active Substance: METHOTREXATE
     Route: 048
  286. METHOTREXATE [Concomitant]
     Active Substance: METHOTREXATE
     Route: 048
  287. METHOTREXATE [Concomitant]
     Active Substance: METHOTREXATE
     Route: 048
  288. METHOTREXATE [Concomitant]
     Active Substance: METHOTREXATE
     Route: 048
  289. METHOTREXATE [Concomitant]
     Active Substance: METHOTREXATE
     Route: 048
  290. METHOTREXATE [Concomitant]
     Active Substance: METHOTREXATE
     Route: 048
  291. METHOTREXATE [Concomitant]
     Active Substance: METHOTREXATE
     Route: 048
  292. MYCOPHENOLATE MOFETIL [Concomitant]
     Active Substance: MYCOPHENOLATE MOFETIL
     Indication: Product used for unknown indication
  293. NAPROXEN SODIUM [Concomitant]
     Active Substance: NAPROXEN SODIUM
     Indication: Rheumatoid arthritis
  294. NAPROXEN SODIUM [Concomitant]
     Active Substance: NAPROXEN SODIUM
  295. ONEALFA [Concomitant]
     Active Substance: ALFACALCIDOL
     Indication: Product used for unknown indication
  296. OXYCODONE HYDROCHLORIDE [Concomitant]
     Active Substance: OXYCODONE HYDROCHLORIDE
     Indication: Product used for unknown indication
  297. PERIOGARD [Concomitant]
     Active Substance: CHLORHEXIDINE GLUCONATE
     Indication: Product used for unknown indication
  298. PERIOGARD [Concomitant]
     Active Substance: CHLORHEXIDINE GLUCONATE
     Route: 048
  299. PERIOGARD [Concomitant]
     Active Substance: CHLORHEXIDINE GLUCONATE
     Route: 002
  300. PERIOGARD [Concomitant]
     Active Substance: CHLORHEXIDINE GLUCONATE
  301. PHTHALYLSULFATHIAZOLE [Concomitant]
     Active Substance: PHTHALYLSULFATHIAZOLE
     Indication: Rheumatoid arthritis
     Route: 048
  302. PHTHALYLSULFATHIAZOLE [Concomitant]
     Active Substance: PHTHALYLSULFATHIAZOLE
     Route: 048
  303. PHTHALYLSULFATHIAZOLE [Concomitant]
     Active Substance: PHTHALYLSULFATHIAZOLE
     Route: 048
  304. PHTHALYLSULFATHIAZOLE [Concomitant]
     Active Substance: PHTHALYLSULFATHIAZOLE
     Route: 058
  305. PHTHALYLSULFATHIAZOLE [Concomitant]
     Active Substance: PHTHALYLSULFATHIAZOLE
     Route: 016
  306. PHTHALYLSULFATHIAZOLE [Concomitant]
     Active Substance: PHTHALYLSULFATHIAZOLE
     Route: 048
  307. PHTHALYLSULFATHIAZOLE [Concomitant]
     Active Substance: PHTHALYLSULFATHIAZOLE
     Route: 048
  308. PHTHALYLSULFATHIAZOLE [Concomitant]
     Active Substance: PHTHALYLSULFATHIAZOLE
     Route: 048
  309. PHTHALYLSULFATHIAZOLE [Concomitant]
     Active Substance: PHTHALYLSULFATHIAZOLE
     Route: 048
  310. PHTHALYLSULFATHIAZOLE [Concomitant]
     Active Substance: PHTHALYLSULFATHIAZOLE
     Route: 048
  311. PHTHALYLSULFATHIAZOLE [Concomitant]
     Active Substance: PHTHALYLSULFATHIAZOLE
     Route: 042
  312. PHTHALYLSULFATHIAZOLE [Concomitant]
     Active Substance: PHTHALYLSULFATHIAZOLE
  313. PHTHALYLSULFATHIAZOLE [Concomitant]
     Active Substance: PHTHALYLSULFATHIAZOLE
  314. PHTHALYLSULFATHIAZOLE [Concomitant]
     Active Substance: PHTHALYLSULFATHIAZOLE
  315. PREDNISOLONE [Concomitant]
     Active Substance: PREDNISOLONE
     Indication: Product used for unknown indication
  316. PREDNISOLONE [Concomitant]
     Active Substance: PREDNISOLONE
     Route: 048
  317. PREDNISOLONE [Concomitant]
     Active Substance: PREDNISOLONE
     Route: 048
  318. PREDNISOLONE [Concomitant]
     Active Substance: PREDNISOLONE
  319. PREDNISONE [Concomitant]
     Active Substance: PREDNISONE
     Indication: Rheumatoid arthritis
     Route: 048
  320. PREDNISONE [Concomitant]
     Active Substance: PREDNISONE
     Indication: Psoriatic arthropathy
     Route: 048
  321. PREDNISONE [Concomitant]
     Active Substance: PREDNISONE
  322. PREDNISONE [Concomitant]
     Active Substance: PREDNISONE
     Route: 048
  323. PREDNISONE [Concomitant]
     Active Substance: PREDNISONE
  324. PREDNISONE [Concomitant]
     Active Substance: PREDNISONE
     Route: 042
  325. PREDNISONE [Concomitant]
     Active Substance: PREDNISONE
  326. PREDNISONE [Concomitant]
     Active Substance: PREDNISONE
     Route: 048
  327. PREDNISONE [Concomitant]
     Active Substance: PREDNISONE
     Route: 048
  328. PREDNISONE [Concomitant]
     Active Substance: PREDNISONE
  329. PREDNISONE [Concomitant]
     Active Substance: PREDNISONE
     Route: 048
  330. PREGABALIN [Concomitant]
     Active Substance: PREGABALIN
     Indication: Product used for unknown indication
  331. PSEUDOEPHEDRINE HYDROCHLORIDE [Concomitant]
     Active Substance: PSEUDOEPHEDRINE HYDROCHLORIDE
     Indication: Product used for unknown indication
  332. PSEUDOEPHEDRINE HYDROCHLORIDE [Concomitant]
     Active Substance: PSEUDOEPHEDRINE HYDROCHLORIDE
  333. PSEUDOEPHEDRINE HYDROCHLORIDE [Concomitant]
     Active Substance: PSEUDOEPHEDRINE HYDROCHLORIDE
  334. PSEUDOEPHEDRINE HYDROCHLORIDE [Concomitant]
     Active Substance: PSEUDOEPHEDRINE HYDROCHLORIDE
  335. CETIRIZINE HYDROCHLORIDE\PSEUDOEPHEDRINE HYDROCHLORIDE [Concomitant]
     Active Substance: CETIRIZINE HYDROCHLORIDE\PSEUDOEPHEDRINE HYDROCHLORIDE
     Indication: Rheumatoid arthritis
  336. CETIRIZINE HYDROCHLORIDE\PSEUDOEPHEDRINE HYDROCHLORIDE [Concomitant]
     Active Substance: CETIRIZINE HYDROCHLORIDE\PSEUDOEPHEDRINE HYDROCHLORIDE
  337. CETIRIZINE HYDROCHLORIDE\PSEUDOEPHEDRINE HYDROCHLORIDE [Concomitant]
     Active Substance: CETIRIZINE HYDROCHLORIDE\PSEUDOEPHEDRINE HYDROCHLORIDE
     Route: 016
  338. CETIRIZINE HYDROCHLORIDE\PSEUDOEPHEDRINE HYDROCHLORIDE [Concomitant]
     Active Substance: CETIRIZINE HYDROCHLORIDE\PSEUDOEPHEDRINE HYDROCHLORIDE
     Indication: Rheumatoid arthritis
  339. CETIRIZINE HYDROCHLORIDE\PSEUDOEPHEDRINE HYDROCHLORIDE [Concomitant]
     Active Substance: CETIRIZINE HYDROCHLORIDE\PSEUDOEPHEDRINE HYDROCHLORIDE
     Route: 048
  340. CETIRIZINE HYDROCHLORIDE\PSEUDOEPHEDRINE HYDROCHLORIDE [Concomitant]
     Active Substance: CETIRIZINE HYDROCHLORIDE\PSEUDOEPHEDRINE HYDROCHLORIDE
  341. CETIRIZINE HYDROCHLORIDE\PSEUDOEPHEDRINE HYDROCHLORIDE [Concomitant]
     Active Substance: CETIRIZINE HYDROCHLORIDE\PSEUDOEPHEDRINE HYDROCHLORIDE
  342. CETIRIZINE HYDROCHLORIDE\PSEUDOEPHEDRINE HYDROCHLORIDE [Concomitant]
     Active Substance: CETIRIZINE HYDROCHLORIDE\PSEUDOEPHEDRINE HYDROCHLORIDE
  343. REMICADE [Concomitant]
     Active Substance: INFLIXIMAB
     Indication: Rheumatoid arthritis
     Route: 042
  344. REMICADE [Concomitant]
     Active Substance: INFLIXIMAB
     Route: 042
  345. REMICADE [Concomitant]
     Active Substance: INFLIXIMAB
  346. RITUXIMAB [Concomitant]
     Active Substance: RITUXIMAB
     Indication: Rheumatoid arthritis
  347. RITUXIMAB [Concomitant]
     Active Substance: RITUXIMAB
     Route: 042
  348. RITUXIMAB [Concomitant]
     Active Substance: RITUXIMAB
     Route: 058
  349. RITUXIMAB [Concomitant]
     Active Substance: RITUXIMAB
     Route: 058
  350. RITUXIMAB [Concomitant]
     Active Substance: RITUXIMAB
     Route: 016
  351. RITUXIMAB [Concomitant]
     Active Substance: RITUXIMAB
     Route: 016
  352. SIMPONI [Concomitant]
     Active Substance: GOLIMUMAB
     Indication: Rheumatoid arthritis
  353. SIMPONI [Concomitant]
     Active Substance: GOLIMUMAB
     Route: 058
  354. SIMPONI [Concomitant]
     Active Substance: GOLIMUMAB
     Route: 052
  355. SIMPONI [Concomitant]
     Active Substance: GOLIMUMAB
     Route: 058
  356. SIMPONI [Concomitant]
     Active Substance: GOLIMUMAB
     Route: 042
  357. STELARA [Concomitant]
     Active Substance: USTEKINUMAB
     Indication: Rheumatoid arthritis
     Route: 042
  358. STELARA [Concomitant]
     Active Substance: USTEKINUMAB
     Route: 058
  359. STELARA [Concomitant]
     Active Substance: USTEKINUMAB
     Route: 058
  360. STELARA [Concomitant]
     Active Substance: USTEKINUMAB
     Route: 042
  361. SULFAMETHOXAZOLE [Concomitant]
     Active Substance: SULFAMETHOXAZOLE
     Indication: Rheumatoid arthritis
  362. SULFAMETHOXAZOLE\TRIMETHOPRIM [Concomitant]
     Active Substance: SULFAMETHOXAZOLE\TRIMETHOPRIM
     Indication: Product used for unknown indication
  363. SULFAMETHOXAZOLE\TRIMETHOPRIM [Concomitant]
     Active Substance: SULFAMETHOXAZOLE\TRIMETHOPRIM
     Route: 067
  364. SULFASALAZINE [Concomitant]
     Active Substance: SULFASALAZINE
     Indication: Product used for unknown indication
     Route: 048
  365. SULFASALAZINE [Concomitant]
     Active Substance: SULFASALAZINE
  366. SULFASALAZINE [Concomitant]
     Active Substance: SULFASALAZINE
     Route: 048
  367. SULFASALAZINE [Concomitant]
     Active Substance: SULFASALAZINE
     Route: 048
  368. SULFASALAZINE [Concomitant]
     Active Substance: SULFASALAZINE
     Route: 058
  369. SULFASALAZINE [Concomitant]
     Active Substance: SULFASALAZINE
  370. SULFASALAZINE [Concomitant]
     Active Substance: SULFASALAZINE
     Route: 048
  371. SULFASALAZINE [Concomitant]
     Active Substance: SULFASALAZINE
     Route: 058
  372. SULFASALAZINE [Concomitant]
     Active Substance: SULFASALAZINE
     Route: 058
  373. SULFASALAZINE [Concomitant]
     Active Substance: SULFASALAZINE
     Route: 048
  374. SULFASALAZINE [Concomitant]
     Active Substance: SULFASALAZINE
     Route: 048
  375. SULFASALAZINE [Concomitant]
     Active Substance: SULFASALAZINE
     Route: 048
  376. SULFASALAZINE [Concomitant]
     Active Substance: SULFASALAZINE
     Route: 048
  377. SULFASALAZINE [Concomitant]
     Active Substance: SULFASALAZINE
     Route: 048
  378. SULFASALAZINE [Concomitant]
     Active Substance: SULFASALAZINE
     Route: 048
  379. SULFASALAZINE [Concomitant]
     Active Substance: SULFASALAZINE
     Route: 048
  380. SULFASALAZINE [Concomitant]
     Active Substance: SULFASALAZINE
     Route: 048
  381. SULFASALAZINE [Concomitant]
     Active Substance: SULFASALAZINE
  382. SULFASALAZINE [Concomitant]
     Active Substance: SULFASALAZINE
     Route: 048
  383. SULFASALAZINE [Concomitant]
     Active Substance: SULFASALAZINE
     Route: 048
  384. SULFASALAZINE [Concomitant]
     Active Substance: SULFASALAZINE
     Route: 048
  385. SULFASALAZINE [Concomitant]
     Active Substance: SULFASALAZINE
     Route: 048
  386. SULFASALAZINE [Concomitant]
     Active Substance: SULFASALAZINE
     Route: 048
  387. SULFASALAZINE [Concomitant]
     Active Substance: SULFASALAZINE
     Route: 048
  388. SULFASALAZINE [Concomitant]
     Active Substance: SULFASALAZINE
  389. SULFASALAZINE [Concomitant]
     Active Substance: SULFASALAZINE
     Route: 048
  390. SULFASALAZINE [Concomitant]
     Active Substance: SULFASALAZINE
     Route: 048
  391. SULFASALAZINE [Concomitant]
     Active Substance: SULFASALAZINE
     Route: 048
  392. SULFASALAZINE [Concomitant]
     Active Substance: SULFASALAZINE
     Route: 048
  393. SULFASALAZINE [Concomitant]
     Active Substance: SULFASALAZINE
  394. SULFASALAZINE [Concomitant]
     Active Substance: SULFASALAZINE
     Route: 048
  395. SULFASALAZINE [Concomitant]
     Active Substance: SULFASALAZINE
     Route: 048
  396. SULFASALAZINE [Concomitant]
     Active Substance: SULFASALAZINE
     Route: 048
  397. SULFASALAZINE [Concomitant]
     Active Substance: SULFASALAZINE
     Route: 048
  398. SULFASALAZINE [Concomitant]
     Active Substance: SULFASALAZINE
  399. SULFASALAZINE [Concomitant]
     Active Substance: SULFASALAZINE
     Route: 048
  400. SULFASALAZINE [Concomitant]
     Active Substance: SULFASALAZINE
  401. SULFASALAZINE [Concomitant]
     Active Substance: SULFASALAZINE
     Route: 048
  402. TOFACITINIB CITRATE [Concomitant]
     Active Substance: TOFACITINIB CITRATE
     Indication: Rheumatoid arthritis
  403. TOFACITINIB CITRATE [Concomitant]
     Active Substance: TOFACITINIB CITRATE
     Indication: Psoriatic arthropathy
     Route: 048
  404. TOFACITINIB CITRATE [Concomitant]
     Active Substance: TOFACITINIB CITRATE
     Route: 048
  405. TOFACITINIB CITRATE [Concomitant]
     Active Substance: TOFACITINIB CITRATE
  406. TOFACITINIB CITRATE [Concomitant]
     Active Substance: TOFACITINIB CITRATE
     Route: 058
  407. VITAMIN C [Concomitant]
     Active Substance: ASCORBIC ACID
     Indication: Product used for unknown indication
  408. PREDNISONE [Concomitant]
     Active Substance: PREDNISONE
     Indication: Rheumatoid arthritis
     Route: 048
  409. XELJANZ [Concomitant]
     Active Substance: TOFACITINIB CITRATE
     Indication: Rheumatoid arthritis
  410. XELJANZ [Concomitant]
     Active Substance: TOFACITINIB CITRATE
  411. XELJANZ [Concomitant]
     Active Substance: TOFACITINIB CITRATE
     Route: 048
  412. XELJANZ [Concomitant]
     Active Substance: TOFACITINIB CITRATE
  413. XELJANZ [Concomitant]
     Active Substance: TOFACITINIB CITRATE
  414. XELJANZ [Concomitant]
     Active Substance: TOFACITINIB CITRATE
     Route: 048
  415. XELJANZ [Concomitant]
     Active Substance: TOFACITINIB CITRATE
  416. XELJANZ [Concomitant]
     Active Substance: TOFACITINIB CITRATE
  417. XELJANZ [Concomitant]
     Active Substance: TOFACITINIB CITRATE
  418. XELJANZ [Concomitant]
     Active Substance: TOFACITINIB CITRATE
  419. XELJANZ [Concomitant]
     Active Substance: TOFACITINIB CITRATE
  420. XELJANZ [Concomitant]
     Active Substance: TOFACITINIB CITRATE
  421. XELJANZ [Concomitant]
     Active Substance: TOFACITINIB CITRATE
  422. XELJANZ [Concomitant]
     Active Substance: TOFACITINIB CITRATE
  423. XELJANZ [Concomitant]
     Active Substance: TOFACITINIB CITRATE
     Route: 048
  424. XELJANZ [Concomitant]
     Active Substance: TOFACITINIB CITRATE
  425. TUMS [Concomitant]
     Active Substance: CALCIUM CARBONATE
     Indication: Product used for unknown indication
  426. ACETAMINOPHEN\OXYCODONE HYDROCHLORIDE [Concomitant]
     Active Substance: ACETAMINOPHEN\OXYCODONE HYDROCHLORIDE
     Indication: Product used for unknown indication
  427. DICLOFENAC [Concomitant]
     Active Substance: DICLOFENAC
     Indication: Product used for unknown indication
  428. DICLOFENAC [Concomitant]
     Active Substance: DICLOFENAC
     Route: 048
  429. DICLOFENAC [Concomitant]
     Active Substance: DICLOFENAC
  430. DICLOFENAC [Concomitant]
     Active Substance: DICLOFENAC
  431. DICLOFENAC [Concomitant]
     Active Substance: DICLOFENAC
     Route: 058

REACTIONS (1)
  - Death [Fatal]
